FAERS Safety Report 10057888 (Version 2)
Quarter: 2014Q3

REPORT INFORMATION
  Report Type: Spontaneous
  Country: DE (occurrence: None)
  Receive Date: 20140402
  Receipt Date: 20140903
  Transmission Date: 20150326
  Serious: Yes (Other)
  Sender: FDA-Public Use
  Company Number: 2014-19268

PATIENT
  Age: 86 Year
  Sex: Male

DRUGS (4)
  1. EYLEA [Suspect]
     Active Substance: AFLIBERCEPT
     Indication: AGE-RELATED MACULAR DEGENERATION
     Route: 031
     Dates: start: 2012, end: 201209
  2. LUTEIN (XANTOFYL) [Concomitant]
  3. CARDINOL (PROPRANOLOL HYDROCHLORIDE) [Concomitant]
  4. OMEGA 3 (DOCOSAHEXANOIC ACID, EICOSAPENTAENOIC ACID) [Concomitant]

REACTIONS (2)
  - Cardiac disorder [None]
  - Inappropriate schedule of drug administration [None]

NARRATIVE: CASE EVENT DATE: 2012
